FAERS Safety Report 17538649 (Version 1)
Quarter: 2020Q1

REPORT INFORMATION
  Report Type: Spontaneous
  Country: US (occurrence: US)
  Receive Date: 20200313
  Receipt Date: 20200313
  Transmission Date: 20200409
  Serious: Yes (Other)
  Sender: FDA-Public Use
  Company Number: None

PATIENT
  Age: 45 Year
  Sex: Female
  Weight: 64.8 kg

DRUGS (9)
  1. CYMBALTA [Concomitant]
     Active Substance: DULOXETINE HYDROCHLORIDE
  2. FORTEO [Concomitant]
     Active Substance: TERIPARATIDE
  3. ULTRACET [Concomitant]
     Active Substance: ACETAMINOPHEN\TRAMADOL HYDROCHLORIDE
  4. BOTOX [Concomitant]
     Active Substance: ONABOTULINUMTOXINA
  5. REYVOW [Suspect]
     Active Substance: LASMIDITAN
     Indication: MIGRAINE
     Route: 048
     Dates: start: 20200303, end: 20200311
  6. VYVANSE [Concomitant]
     Active Substance: LISDEXAMFETAMINE DIMESYLATE
  7. TROKENDI [Concomitant]
     Active Substance: TOPIRAMATE
  8. BREO ELLIPTA [Concomitant]
     Active Substance: FLUTICASONE FUROATE\VILANTEROL TRIFENATATE
  9. MULTIVITAMIN [Concomitant]
     Active Substance: VITAMINS

REACTIONS (6)
  - Muscle twitching [None]
  - Mydriasis [None]
  - Psychomotor hyperactivity [None]
  - Feeling jittery [None]
  - Tremor [None]
  - Drug ineffective [None]

NARRATIVE: CASE EVENT DATE: 20200311
